FAERS Safety Report 9730779 (Version 1)
Quarter: 2013Q4

REPORT INFORMATION
  Report Type: Spontaneous
  Country: US (occurrence: US)
  Receive Date: 20131202
  Receipt Date: 20131202
  Transmission Date: 20140711
  Serious: No
  Sender: FDA-Public Use
  Company Number: US-ENDO PHARMACEUTICALS INC.-OXYC20120043

PATIENT
  Age: 66 Year
  Sex: Male

DRUGS (3)
  1. OXYCODONE HCL 30MG [Suspect]
     Indication: PAIN
     Dosage: 30 MG
     Route: 048
     Dates: start: 201207, end: 2012
  2. OXYCODONE HCL 30MG [Suspect]
     Dosage: 30 MG
     Route: 048
     Dates: start: 2012
  3. NORCO [Concomitant]
     Indication: PAIN
     Dosage: UNKNOWN
     Route: 048
     Dates: end: 2012

REACTIONS (1)
  - Rhinorrhoea [Not Recovered/Not Resolved]
